FAERS Safety Report 19173839 (Version 3)
Quarter: 2022Q3

REPORT INFORMATION
  Report Type: Spontaneous
  Country: JP (occurrence: JP)
  Receive Date: 20210423
  Receipt Date: 20220915
  Transmission Date: 20221027
  Serious: Yes (Hospitalization, Other)
  Sender: FDA-Public Use
  Company Number: JP-ASTELLAS-2021JP007432

PATIENT
  Age: 6 Decade
  Sex: Male

DRUGS (1)
  1. XOSPATA [Suspect]
     Active Substance: GILTERITINIB
     Indication: Acute myeloid leukaemia recurrent
     Route: 048
     Dates: start: 20201102, end: 20210331

REACTIONS (3)
  - Myelofibrosis [Unknown]
  - Pancytopenia [Not Recovered/Not Resolved]
  - Platelet-derived growth factor receptor gene mutation [Unknown]

NARRATIVE: CASE EVENT DATE: 20210331
